FAERS Safety Report 4698970-X (Version None)
Quarter: 2005Q2

REPORT INFORMATION
  Report Type: 
  Country: None (occurrence: None)
  Receive Date: 20050624
  Receipt Date: 20050613
  Transmission Date: 20051028
  Serious: Yes (Death, Life-Threatening, Hospitalization, Disabling, Other)
  Sender: FDA-Public Use
  Company Number: US-BRISTOL-MYERS SQUIBB COMPANY-13002126

PATIENT
  Age: 84 Year
  Sex: Male
  Weight: 51 kg

DRUGS (12)
  1. CETUXIMAB [Suspect]
     Indication: NON-SMALL CELL LUNG CANCER
     Dosage: THERAPY START DATE 22-DEC-2004
     Route: 042
     Dates: start: 20050525, end: 20050525
  2. CARBOPLATIN [Suspect]
     Indication: NON-SMALL CELL LUNG CANCER
     Dosage: REC'D 6 CYCLES.
  3. DOCETAXEL [Suspect]
     Indication: NON-SMALL CELL LUNG CANCER
     Dosage: REC'D 6 CYCLES.
  4. FLORINEF [Concomitant]
     Indication: ADRENAL INSUFFICIENCY
  5. SEPTRA [Concomitant]
  6. LAXATIVES [Concomitant]
  7. CALCIUM GLUCONATE [Concomitant]
  8. ASPIRIN [Concomitant]
  9. FOSAMAX [Concomitant]
  10. HYDROCORTISONE [Concomitant]
     Dosage: 20 MG Q AM, 10 MG Q PM
  11. DARBEPOETIN ALFA [Concomitant]
     Indication: ANAEMIA
     Route: 058
  12. RISTORIL [Concomitant]
     Dosage: 15-30 MG Q HS PRN
     Route: 048

REACTIONS (3)
  - DYSPNOEA [None]
  - MYOCARDIAL INFARCTION [None]
  - PNEUMONITIS [None]
